FAERS Safety Report 8343485 (Version 3)
Quarter: 2017Q2

REPORT INFORMATION
  Report Type: Report from Study
  Country: US (occurrence: US)
  Receive Date: 20120119
  Receipt Date: 20170406
  Transmission Date: 20170830
  Serious: Yes (Hospitalization, Other)
  Sender: FDA-Public Use
  Company Number: US-PURDUE-USA-2012-0080839

PATIENT
  Sex: Male

DRUGS (3)
  1. NEXIUM [Concomitant]
     Active Substance: ESOMEPRAZOLE MAGNESIUM
     Indication: PRODUCT USED FOR UNKNOWN INDICATION
     Route: 048
  2. OXYCONTIN [Suspect]
     Active Substance: OXYCODONE HYDROCHLORIDE
     Indication: PAIN
     Dosage: 80 MG, Q12H
     Route: 048
  3. OXYCONTIN [Suspect]
     Active Substance: OXYCODONE HYDROCHLORIDE
     Dosage: 80 MG, Q12H
     Route: 048
     Dates: start: 2016

REACTIONS (9)
  - Hernia [Unknown]
  - Staphylococcal infection [Recovered/Resolved]
  - Intervertebral disc degeneration [Unknown]
  - Drug ineffective [Unknown]
  - Cyst [Unknown]
  - Weight decreased [Unknown]
  - Drug effect decreased [Unknown]
  - Gastric ulcer [Recovered/Resolved]
  - Gastrooesophageal reflux disease [Unknown]
